FAERS Safety Report 4561021-1 (Version None)
Quarter: 2005Q1

REPORT INFORMATION
  Report Type: 
  Country: None (occurrence: None)
  Receive Date: 20050126
  Receipt Date: 20040809
  Transmission Date: 20050727
  Serious: No
  Sender: FDA-Public Use
  Company Number: US-BRISTOL-MYERS SQUIBB COMPANY-12665238

PATIENT
  Age: 87 Year
  Sex: Female
  Weight: 55 kg

DRUGS (9)
  1. GLUCOPHAGE [Suspect]
     Indication: DIABETES MELLITUS
     Route: 048
     Dates: start: 20040713
  2. TOPROL-XL [Concomitant]
  3. ZOLOFT [Concomitant]
  4. COUMADIN [Concomitant]
  5. VITAMIN D [Concomitant]
  6. LASIX [Concomitant]
  7. MICARDIS [Concomitant]
  8. REMINYL [Concomitant]
  9. NITRO PATCH [Concomitant]

REACTIONS (3)
  - ANOREXIA [None]
  - VOMITING [None]
  - WEIGHT DECREASED [None]
